FAERS Safety Report 9099419 (Version 2)
Quarter: 2013Q1

REPORT INFORMATION
  Report Type: Report from Study
  Country: NZ (occurrence: NZ)
  Receive Date: 20130214
  Receipt Date: 20130226
  Transmission Date: 20140127
  Serious: Yes (Death, Other)
  Sender: FDA-Public Use
  Company Number: PHHY2013NZ014348

PATIENT
  Sex: Female

DRUGS (1)
  1. CLOZARIL [Suspect]
     Dosage: UNK
     Dates: start: 20100324

REACTIONS (2)
  - Death [Fatal]
  - Lower respiratory tract infection [Unknown]
